FAERS Safety Report 5267934-X (Version None)
Quarter: 2007Q1

REPORT INFORMATION
  Report Type: 
  Country: None (occurrence: None)
  Receive Date: 20061213
  Receipt Date: 20050705
  Transmission Date: 20070707
  Serious: Yes (Hospitalization)
  Sender: FDA-Public Use
  Company Number: 2005UW09999

PATIENT

DRUGS (1)
  1. NOLVADEX [Suspect]
     Dates: start: 20040101

REACTIONS (2)
  - MUSCLE TWITCHING [None]
  - THROMBOSIS [None]
